FAERS Safety Report 5745552-4 (Version None)
Quarter: 2008Q2

REPORT INFORMATION
  Report Type: 
  Country: None (occurrence: None)
  Receive Date: 20080519
  Receipt Date: 20080321
  Transmission Date: 20081010
  Serious: No
  Sender: FDA-Public Use
  Company Number: TPA2008A00373

PATIENT
  Age: 31 Year
  Sex: Male
  Weight: 68.0396 kg

DRUGS (6)
  1. ROZEREM [Suspect]
     Indication: INSOMNIA
     Dosage: 8 MG, QHS, PER ORAL
     Route: 048
     Dates: start: 20080319
  2. COPAXONE [Concomitant]
  3. MERCAPTOPURINE [Concomitant]
  4. NEXIUM [Concomitant]
  5. LAMICTAL [Concomitant]
  6. LEXAPRO [Concomitant]

REACTIONS (1)
  - LETHARGY [None]
